FAERS Safety Report 7714615-6 (Version None)
Quarter: 2011Q3

REPORT INFORMATION
  Report Type: 
  Country: None (occurrence: None)
  Receive Date: 20110829
  Receipt Date: 20110823
  Transmission Date: 20111222
  Serious: No
  Sender: FDA-Public Use
  Company Number: US-PFIZER INC-2011196323

PATIENT
  Sex: Male

DRUGS (1)
  1. SUTENT [Suspect]
     Indication: GASTROINTESTINAL STROMAL TUMOUR
     Dosage: 12.5MG AND 25MG, 1X/DAY
     Route: 048
     Dates: start: 20110701

REACTIONS (3)
  - GLOSSODYNIA [None]
  - DIARRHOEA [None]
  - ORAL PAIN [None]
